FAERS Safety Report 9192108 (Version 1)
Quarter: 2013Q1

REPORT INFORMATION
  Report Type: Spontaneous
  Country: DE (occurrence: None)
  Receive Date: 20130325
  Receipt Date: 20130325
  Transmission Date: 20140127
  Serious: Yes (Life-Threatening, Hospitalization, Disabling)
  Sender: FDA-Public Use
  Company Number: IPC201303-000103

PATIENT
  Age: 65 Year
  Sex: Male

DRUGS (1)
  1. METFORMIN [Suspect]
     Indication: DIABETES MELLITUS
     Route: 048
     Dates: start: 20120326

REACTIONS (8)
  - Hepatic failure [None]
  - Renal failure [None]
  - Hyperbilirubinaemia [None]
  - Laboratory test abnormal [None]
  - Somnolence [None]
  - Lactic acidosis [None]
  - Acidosis [None]
  - Sepsis [None]
